FAERS Safety Report 9964194 (Version 1)
Quarter: 2014Q1

REPORT INFORMATION
  Report Type: Spontaneous
  Country: FR (occurrence: FR)
  Receive Date: 20140305
  Receipt Date: 20140305
  Transmission Date: 20141002
  Serious: Yes (Hospitalization)
  Sender: FDA-Public Use
  Company Number: FR-B.I. PHARMACEUTICALS,INC./RIDGEFIELD-2014-BI-08911FF

PATIENT
  Age: 86 Year
  Sex: Male
  Weight: 55 kg

DRUGS (4)
  1. PRADAXA [Suspect]
     Indication: ARRHYTHMIA
     Route: 048
     Dates: end: 20131106
  2. DIGOXINE NATIVELLE [Concomitant]
     Dosage: 0.5 MG
     Route: 048
  3. AVODART [Concomitant]
     Route: 048
  4. LEVOTHYROX [Concomitant]
     Route: 048

REACTIONS (3)
  - Haemorrhagic anaemia [Recovered/Resolved]
  - Coagulation factor V level decreased [Recovered/Resolved]
  - Altered state of consciousness [Recovered/Resolved]
